FAERS Safety Report 10445214 (Version 1)
Quarter: 2014Q3

REPORT INFORMATION
  Report Type: Spontaneous
  Country: JP (occurrence: JP)
  Receive Date: 20140910
  Receipt Date: 20140910
  Transmission Date: 20150326
  Serious: Yes (Death, Hospitalization)
  Sender: FDA-Public Use
  Company Number: PHHY2014JP111586

PATIENT
  Age: 83 Year
  Sex: Female

DRUGS (4)
  1. PREDNISOLONE. [Suspect]
     Active Substance: PREDNISOLONE
     Indication: RHEUMATOID ARTHRITIS
     Dosage: 5 MG, PER DAY
  2. PREDNISOLONE. [Suspect]
     Active Substance: PREDNISOLONE
     Dosage: 40 MG, PER DAY
  3. PREDNISOLONE. [Suspect]
     Active Substance: PREDNISOLONE
     Dosage: 30 MG/DAY TO 5 MG, PER DAY
  4. ACYCLOVIR. [Concomitant]
     Active Substance: ACYCLOVIR

REACTIONS (21)
  - Fatigue [Unknown]
  - Cardiac murmur [Unknown]
  - Withdrawal syndrome [Unknown]
  - Loss of consciousness [Recovered/Resolved]
  - Arthralgia [Unknown]
  - Coma [Unknown]
  - Headache [Unknown]
  - Disseminated tuberculosis [Unknown]
  - Pneumonia bacterial [Unknown]
  - Rales [Unknown]
  - Nephrotic syndrome [Unknown]
  - Cryptococcosis [Unknown]
  - Respiratory failure [Fatal]
  - Dizziness [Unknown]
  - Lymphadenopathy [Unknown]
  - Disseminated intravascular coagulation [Recovering/Resolving]
  - Ascites [Unknown]
  - Cardiac failure [Fatal]
  - Paralysis [Unknown]
  - Nausea [Unknown]
  - Vomiting [Unknown]
